FAERS Safety Report 11195462 (Version 1)
Quarter: 2015Q2

REPORT INFORMATION
  Report Type: Spontaneous
  Country: US (occurrence: US)
  Receive Date: 20150617
  Receipt Date: 20150617
  Transmission Date: 20150821
  Serious: Yes (Death, Hospitalization)
  Sender: FDA-Public Use
  Company Number: US-ACTAVIS-2015-11650

PATIENT
  Age: 17 Year
  Sex: Male

DRUGS (8)
  1. MYCOPHENOLATE MOFETIL (UNKNOWN) [Suspect]
     Active Substance: MYCOPHENOLATE MOFETIL
     Indication: PROPHYLAXIS AGAINST GRAFT VERSUS HOST DISEASE
     Dosage: UNK
     Route: 065
  2. CYCLOSPORINE (WATSON LABORATORIES) [Suspect]
     Active Substance: CYCLOSPORINE
     Indication: PROPHYLAXIS AGAINST GRAFT VERSUS HOST DISEASE
     Dosage: UNK
     Route: 065
  3. PREDNISONE (WATSON LABORATORIES) [Suspect]
     Active Substance: PREDNISONE
     Indication: IMMUNODEFICIENCY COMMON VARIABLE
     Dosage: HIGH DOSES
     Route: 065
  4. TACROLIMUS (WATSON LABORATORIES) [Suspect]
     Active Substance: TACROLIMUS
     Indication: PROPHYLAXIS AGAINST GRAFT VERSUS HOST DISEASE
     Dosage: UNK
     Route: 065
  5. GANCICLOVIR. [Concomitant]
     Active Substance: GANCICLOVIR
     Indication: ANTIVIRAL PROPHYLAXIS
     Dosage: UNK
     Route: 065
  6. PIPERACILLIN AND TAZOBACTAM [Concomitant]
     Active Substance: PIPERACILLIN SODIUM\TAZOBACTAM SODIUM
     Indication: BACTERIAL INFECTION
     Dosage: UNK
     Route: 065
  7. SIMULECT [Suspect]
     Active Substance: BASILIXIMAB
     Indication: PROPHYLAXIS AGAINST GRAFT VERSUS HOST DISEASE
     Dosage: UNK
     Route: 065
  8. PREDNISONE (WATSON LABORATORIES) [Suspect]
     Active Substance: PREDNISONE
     Indication: PULMONARY HAEMORRHAGE
     Dosage: 5.85 G, TOTAL
     Route: 048

REACTIONS (1)
  - Aspergillus infection [Fatal]
